FAERS Safety Report 10945665 (Version 2)
Quarter: 2015Q3

REPORT INFORMATION
  Report Type: Spontaneous
  Country: US (occurrence: US)
  Receive Date: 20150323
  Receipt Date: 20150805
  Transmission Date: 20151125
  Serious: Yes (Other)
  Sender: FDA-Public Use
  Company Number: US-BAYER-2015-037236

PATIENT
  Age: 33 Year
  Sex: Female

DRUGS (1)
  1. MIRENA [Suspect]
     Active Substance: LEVONORGESTREL
     Indication: CONTRACEPTION
     Dosage: 20 MCG/24HR, CONT
     Route: 015
     Dates: start: 20130319, end: 20140624

REACTIONS (17)
  - Device dislocation [None]
  - Syncope [Not Recovered/Not Resolved]
  - Activities of daily living impaired [None]
  - Depression [None]
  - Pelvic pain [None]
  - Uterine perforation [None]
  - Injury [None]
  - Back pain [None]
  - Uterine pain [None]
  - Genital haemorrhage [Not Recovered/Not Resolved]
  - Procedural pain [None]
  - Infertility female [None]
  - Pain in extremity [None]
  - Medical device pain [None]
  - Abasia [None]
  - Anxiety [None]
  - Pain [None]

NARRATIVE: CASE EVENT DATE: 201305
